FAERS Safety Report 21349509 (Version 1)
Quarter: 2022Q3

REPORT INFORMATION
  Report Type: Other
  Country: US (occurrence: US)
  Receive Date: 20220919
  Receipt Date: 20220919
  Transmission Date: 20221026
  Serious: No
  Sender: FDA-Public Use
  Company Number: US-LEADIANT BIOSCIENCES INC-2022STPI000257

PATIENT
  Sex: Female

DRUGS (1)
  1. MATULANE [Suspect]
     Active Substance: PROCARBAZINE HYDROCHLORIDE
     Indication: Brain neoplasm malignant
     Dosage: 50 MILLIGRAM, TAKE 2 CAPSULES (100 MG TOTAL) DAILY FOR 14 DAYS TO START ON 8 JUNE
     Route: 048
     Dates: start: 20220607

REACTIONS (2)
  - Fatigue [Unknown]
  - Decreased appetite [Unknown]
